FAERS Safety Report 24377861 (Version 1)
Quarter: 2024Q3

REPORT INFORMATION
  Report Type: Report from Study
  Country: US (occurrence: US)
  Receive Date: 20240930
  Receipt Date: 20240930
  Transmission Date: 20241017
  Serious: Yes (Other)
  Sender: ABBVIE
  Company Number: US-ABBVIE-5941741

PATIENT

DRUGS (1)
  1. VENCLEXTA [Suspect]
     Active Substance: VENETOCLAX
     Indication: Pancytopenia
     Route: 048

REACTIONS (3)
  - Myelodysplastic syndrome with excess blasts [Unknown]
  - Off label use [Unknown]
  - Haematuria [Unknown]
